FAERS Safety Report 24979924 (Version 1)
Quarter: 2025Q1

REPORT INFORMATION
  Report Type: Spontaneous
  Country: US (occurrence: US)
  Receive Date: 20250218
  Receipt Date: 20250218
  Transmission Date: 20250409
  Serious: Yes (Other)
  Sender: CATALYST PHARMA
  Company Number: US-CATALYSTPHARMACEUTICALPARTNERS-EC-2019-060353

PATIENT
  Age: 25 Year
  Sex: Male

DRUGS (4)
  1. FYCOMPA [Suspect]
     Active Substance: PERAMPANEL
     Indication: Epilepsy
     Dosage: 6 MG POQHS (ONCE BEFORE BED TIME)
     Route: 048
     Dates: start: 20171220
  2. FYCOMPA [Suspect]
     Active Substance: PERAMPANEL
     Indication: Seizure
     Dosage: 8 MG ONCE DAILY
     Route: 048
     Dates: start: 20190111
  3. FYCOMPA [Suspect]
     Active Substance: PERAMPANEL
     Route: 048
     Dates: start: 20200303
  4. FYCOMPA [Suspect]
     Active Substance: PERAMPANEL
     Dosage: 12 MG ONCE DAILY
     Route: 048
     Dates: start: 20210305

REACTIONS (2)
  - Seizure [Unknown]
  - Off label use [Unknown]

NARRATIVE: CASE EVENT DATE: 20171220
